FAERS Safety Report 5370622-2 (Version None)
Quarter: 2007Q2

REPORT INFORMATION
  Report Type: 
  Country: None (occurrence: None)
  Receive Date: 20070618
  Receipt Date: 20060602
  Transmission Date: 20071010
  Serious: Yes (Other)
  Sender: FDA-Public Use
  Company Number: PHEH2006US04243

PATIENT
  Age: 85 Year
  Sex: Male
  Weight: 73 kg

DRUGS (3)
  1. GLEEVEC [Suspect]
     Indication: CHRONIC MYELOID LEUKAEMIA
     Dosage: 400 MG, QD, ORAL; 200 MG, TID, ORAL
     Route: 048
     Dates: start: 20051207, end: 20060208
  2. GLEEVEC [Suspect]
     Indication: CHRONIC MYELOID LEUKAEMIA
     Dosage: 400 MG, QD, ORAL; 200 MG, TID, ORAL
     Route: 048
     Dates: start: 20060525
  3. AMIODARONE HCL [Suspect]
     Indication: VENTRICULAR ARRHYTHMIA
     Dosage: 200 MG, BID, ORAL
     Route: 048
     Dates: end: 20060525

REACTIONS (4)
  - CARDIAC FAILURE CONGESTIVE [None]
  - FALL [None]
  - INJURY [None]
  - SYNCOPE [None]
